FAERS Safety Report 8805656 (Version 1)
Quarter: 2012Q4

REPORT INFORMATION
  Report Type: 
  Country: GB (occurrence: GB)
  Receive Date: 20120924
  Receipt Date: 20120924
  Transmission Date: 20130627
  Serious: Yes (Disabling)
  Sender: FDA-Public Use
  Company Number: GB-009507513-1209GBR008929

PATIENT
  Age: 89 Year
  Sex: Male

DRUGS (8)
  1. ZOCOR [Suspect]
     Indication: HYPERCHOLESTEROLAEMIA
     Dosage: 40 mg, qd
     Route: 048
     Dates: end: 20120829
  2. ZOCOR [Interacting]
     Indication: PROPHYLAXIS
  3. CYPROTERONE ACETATE [Interacting]
     Indication: PROSTATE CANCER
     Dosage: 100 mg, tid
     Route: 048
     Dates: start: 20120731, end: 20120829
  4. ALFACALCIDOL [Concomitant]
  5. AMLODIPINE [Concomitant]
  6. DECAPEPTYL (TRIPTORELIN ACETATE) [Concomitant]
     Dosage: 11.25 mg, UNK
     Route: 030
     Dates: start: 20120821
  7. DECAPEPTYL (TRIPTORELIN PAMOATE) [Concomitant]
     Dosage: 11.25 mg, UNK
     Route: 030
     Dates: start: 20120821
  8. FERROUS FUMARATE [Concomitant]

REACTIONS (9)
  - Renal failure acute [Unknown]
  - Alanine aminotransferase increased [Unknown]
  - Aspartate aminotransferase increased [Unknown]
  - Blood creatine increased [Unknown]
  - Blood creatine phosphokinase increased [Unknown]
  - Drug interaction [Unknown]
  - Nausea [Unknown]
  - Rhabdomyolysis [Recovered/Resolved with Sequelae]
  - Asthenia [Unknown]
